FAERS Safety Report 12562299 (Version 1)
Quarter: 2016Q3

REPORT INFORMATION
  Report Type: Spontaneous
  Country: US (occurrence: US)
  Receive Date: 20160715
  Receipt Date: 20160715
  Transmission Date: 20161109
  Serious: No
  Sender: FDA-Public Use
  Company Number: US-ENDO PHARMACEUTICALS INC-2016SCPR015431

PATIENT

DRUGS (2)
  1. COLY-MYCIN S [Suspect]
     Active Substance: COLISTIN SULFATE\HYDROCORTISONE ACETATE\NEOMYCIN SULFATE\THONZONIUM BROMIDE
     Indication: PRODUCT USED FOR UNKNOWN INDICATION
     Dosage: UNK
     Route: 047
     Dates: start: 20160428, end: 20160428
  2. COLY-MYCIN S [Suspect]
     Active Substance: COLISTIN SULFATE\HYDROCORTISONE ACETATE\NEOMYCIN SULFATE\THONZONIUM BROMIDE
     Dosage: UNK
     Route: 001

REACTIONS (2)
  - Incorrect route of drug administration [Recovered/Resolved]
  - Accidental exposure to product [Recovered/Resolved]

NARRATIVE: CASE EVENT DATE: 20160428
